FAERS Safety Report 10068756 (Version 1)
Quarter: 2014Q2

REPORT INFORMATION
  Report Type: Spontaneous
  Country: US (occurrence: US)
  Receive Date: 20140409
  Receipt Date: 20140409
  Transmission Date: 20141212
  Serious: Yes (Other)
  Sender: FDA-Public Use
  Company Number: US-BRISTOL-MYERS SQUIBB COMPANY-20585352

PATIENT
  Age: 60 Year
  Sex: Female
  Weight: 95.24 kg

DRUGS (8)
  1. ABILIFY [Suspect]
     Indication: DEPRESSION
     Dates: start: 20120106, end: 201308
  2. ABILIFY [Suspect]
     Indication: ANXIETY
     Dates: start: 20120106, end: 201308
  3. LOSARTAN [Concomitant]
  4. TRIAMTERENE [Concomitant]
  5. HYDROCHLOROTHIAZIDE [Concomitant]
     Dosage: 1 DF:37.5 UNIT NOS
  6. POTASSIUM [Concomitant]
  7. CELEXA [Concomitant]
  8. CYMBALTA [Concomitant]

REACTIONS (3)
  - Parkinson^s disease [Unknown]
  - Headache [Unknown]
  - Dyspepsia [Unknown]
